FAERS Safety Report 8786960 (Version 1)
Quarter: 2012Q4

REPORT INFORMATION
  Report Type: 
  Country: US (occurrence: US)
  Receive Date: 20120914
  Receipt Date: 20120914
  Transmission Date: 20130627
  Serious: No
  Sender: FDA-Public Use
  Company Number: US-PFIZER INC-2012227342

PATIENT
  Sex: Female
  Weight: 54.42 kg

DRUGS (2)
  1. EFFEXOR XR [Suspect]
     Indication: ANXIETY
     Dosage: UNK, 1x/day
     Route: 048
  2. EFFEXOR XR [Suspect]
     Dosage: 50 mg, 1x/day
     Route: 048
     Dates: end: 201202

REACTIONS (1)
  - Weight increased [Recovering/Resolving]
